FAERS Safety Report 8127372-9 (Version None)
Quarter: 2011Q4

REPORT INFORMATION
  Report Type: 
  Country: None (occurrence: None)
  Receive Date: 20111227
  Receipt Date: 20111025
  Transmission Date: 20120403
  Serious: No
  Sender: FDA-Public Use
  Company Number: PHEH2011US07887

PATIENT
  Age: 48 Year
  Sex: Female
  Weight: 74.8 kg

DRUGS (5)
  1. TRICOR [Concomitant]
  2. PEPAID [Concomitant]
  3. FAMPRIDINE (FAMPRIDINE) [Concomitant]
  4. PLAVIX [Concomitant]
  5. GILENYA [Suspect]
     Indication: MULTIPLE SCLEROSIS
     Dosage: 0.5 MG, QD, ORAL
     Route: 048
     Dates: start: 20111003

REACTIONS (1)
  - OEDEMA [None]
